FAERS Safety Report 13980973 (Version 1)
Quarter: 2017Q3

REPORT INFORMATION
  Report Type: Spontaneous
  Country: US (occurrence: US)
  Receive Date: 20170918
  Receipt Date: 20170918
  Transmission Date: 20171128
  Serious: No
  Sender: FDA-Public Use
  Company Number: US-TEVA-758171ACC

PATIENT
  Sex: Male
  Weight: 104.31 kg

DRUGS (3)
  1. FEXOFENADINE 180 MG 571 [Suspect]
     Active Substance: FEXOFENADINE HYDROCHLORIDE
     Dosage: 180 MILLIGRAM DAILY;
     Route: 048
     Dates: start: 201701
  2. FEXOFENADINE 180 MG 571 [Suspect]
     Active Substance: FEXOFENADINE HYDROCHLORIDE
     Dosage: .5 DOSAGE FORMS DAILY;
     Route: 048
     Dates: start: 201701, end: 201701
  3. FEXOFENADINE 180 MG 571 [Suspect]
     Active Substance: FEXOFENADINE HYDROCHLORIDE
     Indication: HYPERSENSITIVITY
     Dosage: 180 MILLIGRAM DAILY;
     Route: 048
     Dates: end: 201701

REACTIONS (4)
  - Drug administered to patient of inappropriate age [Unknown]
  - Underdose [Unknown]
  - Wrong technique in product usage process [Unknown]
  - Nasal dryness [Not Recovered/Not Resolved]
